FAERS Safety Report 7034009-9 (Version None)
Quarter: 2010Q4

REPORT INFORMATION
  Report Type: 
  Country: None (occurrence: None)
  Receive Date: 20101007
  Receipt Date: 20100930
  Transmission Date: 20110411
  Serious: Yes (Life-Threatening, Hospitalization)
  Sender: FDA-Public Use
  Company Number: PHHY2010PT64982

PATIENT
  Age: 82 Year
  Sex: Female

DRUGS (8)
  1. RASILEZ [Suspect]
     Indication: HYPERTENSION
     Dosage: 150 MG
     Dates: start: 20100928
  2. ENALAPRIL MALEATE [Concomitant]
     Dosage: UNK
  3. AMLODIPINE [Concomitant]
     Dosage: 10 MG
  4. STATIN [Concomitant]
     Dosage: UNK
  5. METFORMIN [Concomitant]
     Dosage: UNK
  6. ACETYLSALICYLIC ACID SRT [Concomitant]
     Dosage: UNK
  7. LANSOPRAZOLE [Concomitant]
     Dosage: UNK
  8. LASIX [Concomitant]
     Dosage: 40 MG

REACTIONS (3)
  - LARYNGEAL OEDEMA [None]
  - RESPIRATORY ARREST [None]
  - TACHYPNOEA [None]
